FAERS Safety Report 4505137-4 (Version None)
Quarter: 2004Q4

REPORT INFORMATION
  Report Type: 
  Country: None (occurrence: None)
  Receive Date: 20041117
  Receipt Date: 20041117
  Transmission Date: 20050328
  Serious: Yes (Hospitalization)
  Sender: FDA-Public Use
  Company Number: None

PATIENT
  Age: 64 Year
  Sex: Male

DRUGS (5)
  1. ATROPINE [Suspect]
     Indication: DROOLING
     Dosage: * SL FOR DROOLING
  2. FUROSEMIDE [Concomitant]
  3. LACTUCOSE [Concomitant]
  4. KCL TAB [Concomitant]
  5. SPIRONOLACTONE [Concomitant]

REACTIONS (7)
  - ASTHENIA [None]
  - CONFUSIONAL STATE [None]
  - DRY MOUTH [None]
  - HALLUCINATION [None]
  - NAUSEA [None]
  - SPEECH DISORDER [None]
  - URINARY RETENTION [None]
